FAERS Safety Report 16955514 (Version 9)
Quarter: 2022Q2

REPORT INFORMATION
  Report Type: Other
  Country: CA (occurrence: None)
  Receive Date: 20191024
  Receipt Date: 20220413
  Transmission Date: 20220720
  Serious: Yes (Hospitalization, Other)
  Sender: FDA-Public Use
  Company Number: CA-ROCHE-2295088

PATIENT
  Age: 47 Year
  Sex: Female

DRUGS (6)
  1. OCREVUS [Suspect]
     Active Substance: OCRELIZUMAB
     Indication: Relapsing-remitting multiple sclerosis
     Dosage: 300 MG AT DAY 0 AND 14, THEN 600 MG EVERY 6 MONTH
     Route: 042
     Dates: start: 20190322
  2. BACLOFEN [Concomitant]
     Active Substance: BACLOFEN
     Dosage: 10 MG BUT TAKES 5  AT BED TIME ;ONGOING: YES
     Dates: start: 201902
  3. TYLENOL [Concomitant]
     Active Substance: ACETAMINOPHEN
  4. IBUPROFEN\METHOCARBAMOL [Concomitant]
     Active Substance: IBUPROFEN\METHOCARBAMOL
     Indication: Musculoskeletal stiffness
     Dates: start: 201902
  5. NAPROXEN [Concomitant]
     Active Substance: NAPROXEN
     Dates: start: 201902
  6. REBIF [Concomitant]
     Active Substance: INTERFERON BETA-1A
     Dates: start: 20200217, end: 20200531

REACTIONS (11)
  - Fine motor skill dysfunction [Not Recovered/Not Resolved]
  - Post procedural infection [Recovered/Resolved]
  - Fatigue [Not Recovered/Not Resolved]
  - Pain [Not Recovered/Not Resolved]
  - Muscular weakness [Not Recovered/Not Resolved]
  - Muscle disorder [Unknown]
  - Sleep disorder [Unknown]
  - Muscle spasms [Recovering/Resolving]
  - Paranasal sinus hypersecretion [Recovering/Resolving]
  - Post procedural complication [Unknown]
  - Poor quality sleep [Not Recovered/Not Resolved]

NARRATIVE: CASE EVENT DATE: 20190328
